FAERS Safety Report 14599111 (Version 6)
Quarter: 2019Q4

REPORT INFORMATION
  Report Type: Report from Study
  Country: US (occurrence: US)
  Receive Date: 20180305
  Receipt Date: 20191025
  Transmission Date: 20200122
  Serious: Yes (Hospitalization, Other)
  Sender: FDA-Public Use
  Company Number: US-TAKEDA-2018TUS005143

PATIENT
  Age: 24 Year
  Sex: Female

DRUGS (9)
  1. PONATINIB [Suspect]
     Active Substance: PONATINIB
     Dosage: 15 MILLIGRAM, QD
     Route: 048
  2. LEVOTHYROXINE SODIUM. [Concomitant]
     Active Substance: LEVOTHYROXINE SODIUM
     Dosage: UNK
  3. NORTREL                            /00318901/ [Concomitant]
     Active Substance: LEVONORGESTREL
     Dosage: UNK
  4. OXYCODONE HYDROCHLORIDE. [Concomitant]
     Active Substance: OXYCODONE HYDROCHLORIDE
     Dosage: UNK
  5. PROTONIX                           /00661201/ [Concomitant]
     Active Substance: OMEPRAZOLE
     Dosage: UNK
  6. PONATINIB [Suspect]
     Active Substance: PONATINIB
     Indication: CHRONIC MYELOID LEUKAEMIA
     Dosage: 30 MILLIGRAM, QD
     Route: 048
     Dates: start: 20170724
  7. VITAMIN D3 [Concomitant]
     Active Substance: CHOLECALCIFEROL
     Dosage: UNK
  8. ZYRTEC [Concomitant]
     Active Substance: CETIRIZINE HYDROCHLORIDE
     Dosage: UNK
  9. BENADRYL ALLERGY [Concomitant]
     Active Substance: DIPHENHYDRAMINE HYDROCHLORIDE
     Dosage: UNK

REACTIONS (17)
  - Vulvovaginal pain [Unknown]
  - Hypothyroidism [Unknown]
  - Erythema [Unknown]
  - Pain [Unknown]
  - Myalgia [Recovered/Resolved]
  - Constipation [Recovered/Resolved]
  - Decreased appetite [Unknown]
  - Nausea [Unknown]
  - Graft versus host disease in gastrointestinal tract [Recovered/Resolved]
  - Pyrexia [Unknown]
  - Anxiety [Unknown]
  - Neuropathy peripheral [Recovered/Resolved]
  - Joint stiffness [Unknown]
  - Pustule [Recovering/Resolving]
  - Fatigue [Unknown]
  - Product dose omission [Unknown]
  - Graft versus host disease in skin [Recovered/Resolved]

NARRATIVE: CASE EVENT DATE: 20171123
